FAERS Safety Report 6772678-9 (Version None)
Quarter: 2010Q2

REPORT INFORMATION
  Report Type: 
  Country: None (occurrence: None)
  Receive Date: 20100616
  Receipt Date: 20090609
  Transmission Date: 20101027
  Serious: No
  Sender: FDA-Public Use
  Company Number: US-ASTRAZENECA-2009UW14688

PATIENT
  Age: 79 Year
  Sex: Female
  Weight: 63.5 kg

DRUGS (8)
  1. PULMICORT [Suspect]
     Indication: CHRONIC OBSTRUCTIVE PULMONARY DISEASE
     Route: 055
     Dates: end: 20090401
  2. PULMICORT [Suspect]
     Route: 055
     Dates: start: 20090401
  3. BROVANA [Suspect]
     Indication: CHRONIC OBSTRUCTIVE PULMONARY DISEASE
     Dosage: 15 UG/2ML
     Route: 055
     Dates: start: 20090401
  4. XOPENEX [Suspect]
     Indication: CHRONIC OBSTRUCTIVE PULMONARY DISEASE
     Route: 055
     Dates: start: 20090301
  5. ALBUTEROL [Concomitant]
  6. VERAPAMIL [Concomitant]
  7. CENTRUM SILVER [Concomitant]
  8. CRESTOR [Concomitant]

REACTIONS (1)
  - FATIGUE [None]
